FAERS Safety Report 10035776 (Version 2)
Quarter: 2014Q1

REPORT INFORMATION
  Report Type: Spontaneous
  Country: IT (occurrence: IT)
  Receive Date: 20140325
  Receipt Date: 20140325
  Transmission Date: 20141002
  Serious: Yes (Other)
  Sender: FDA-Public Use
  Company Number: IT-PFIZER INC-2014079930

PATIENT
  Age: 26 Year
  Sex: Female

DRUGS (1)
  1. SULFASALAZINE [Suspect]
     Indication: COLITIS ULCERATIVE
     Dosage: 3 G, DAILY
     Dates: start: 198106

REACTIONS (2)
  - Eosinophilic pneumonia [Recovered/Resolved]
  - Pulmonary eosinophilia [Recovered/Resolved]
